FAERS Safety Report 12863678 (Version 1)
Quarter: 2016Q4

REPORT INFORMATION
  Report Type: Spontaneous
  Country: GB (occurrence: GB)
  Receive Date: 20161019
  Receipt Date: 20161019
  Transmission Date: 20170207
  Serious: Yes (Other)
  Sender: FDA-Public Use
  Company Number: GB-MYLANLABS-2016M1044096

PATIENT

DRUGS (4)
  1. AZATHIOPRINE. [Suspect]
     Active Substance: AZATHIOPRINE
     Dosage: UNK (6 TABS A DAY AT THE TIME OF THE EVENT (PT CURRENTLY TAKES 3 A DAY))
  2. HUMIRA [Concomitant]
     Active Substance: ADALIMUMAB
     Dosage: UNK (ONCE FORTNIGHTLY)
  3. CLENIL MODULITE [Concomitant]
     Active Substance: BECLOMETHASONE DIPROPIONATE
     Indication: ASTHMA
     Dosage: UNK
  4. VENTOLIN [Concomitant]
     Active Substance: ALBUTEROL SULFATE
     Indication: ASTHMA
     Dosage: UNK

REACTIONS (2)
  - Chromaturia [Recovering/Resolving]
  - Colitis ulcerative [Recovering/Resolving]
